FAERS Safety Report 8576945-8 (Version None)
Quarter: 2012Q2

REPORT INFORMATION
  Report Type: 
  Country: None (occurrence: None)
  Receive Date: 20120423
  Receipt Date: 20091217
  Transmission Date: 20120825
  Serious: Yes (Other)
  Sender: FDA-Public Use
  Company Number: PHEH2009US11474

PATIENT
  Sex: Female

DRUGS (6)
  1. EXJADE [Suspect]
     Indication: ERYTHROPOIESIS ABNORMAL
     Dosage: 500 MG DAILY, ORAL 500 MG DAILY, ORAL
     Route: 048
     Dates: start: 20090730, end: 20090922
  2. EXJADE [Suspect]
     Indication: THALASSAEMIA BETA
     Dosage: 500 MG DAILY, ORAL 500 MG DAILY, ORAL
     Route: 048
     Dates: start: 20090730, end: 20090922
  3. EXJADE [Suspect]
     Indication: CHELATION THERAPY
     Dosage: 500 MG DAILY, ORAL 500 MG DAILY, ORAL
     Route: 048
     Dates: start: 20090730, end: 20090922
  4. EXJADE [Suspect]
     Indication: ERYTHROPOIESIS ABNORMAL
     Dosage: 500 MG DAILY, ORAL 500 MG DAILY, ORAL
     Route: 048
     Dates: start: 20090301, end: 20090701
  5. EXJADE [Suspect]
     Indication: THALASSAEMIA BETA
     Dosage: 500 MG DAILY, ORAL 500 MG DAILY, ORAL
     Route: 048
     Dates: start: 20090301, end: 20090701
  6. EXJADE [Suspect]
     Indication: CHELATION THERAPY
     Dosage: 500 MG DAILY, ORAL 500 MG DAILY, ORAL
     Route: 048
     Dates: start: 20090301, end: 20090701

REACTIONS (9)
  - LIVER FUNCTION TEST ABNORMAL [None]
  - BILIRUBIN CONJUGATED INCREASED [None]
  - BLOOD ALKALINE PHOSPHATASE INCREASED [None]
  - CARDIAC MURMUR [None]
  - SERUM FERRITIN INCREASED [None]
  - GAMMA-GLUTAMYLTRANSFERASE INCREASED [None]
  - ASPARTATE AMINOTRANSFERASE INCREASED [None]
  - ALANINE AMINOTRANSFERASE INCREASED [None]
  - BLOOD BILIRUBIN INCREASED [None]
